FAERS Safety Report 7112990-7 (Version None)
Quarter: 2010Q4

REPORT INFORMATION
  Report Type: 
  Country: None (occurrence: None)
  Receive Date: 20101119
  Receipt Date: 20101112
  Transmission Date: 20110411
  Serious: Yes (Hospitalization)
  Sender: FDA-Public Use
  Company Number: IT-ASTRAZENECA-2010SE54281

PATIENT
  Age: 65 Year
  Sex: Female

DRUGS (2)
  1. ATENOLOL [Suspect]
  2. RIVASTIGMINE [Suspect]

REACTIONS (3)
  - SINUS ARREST [None]
  - SINUS BRADYCARDIA [None]
  - SYNCOPE [None]
